FAERS Safety Report 25812149 (Version 1)
Quarter: 2025Q3

REPORT INFORMATION
  Report Type: Spontaneous
  Country: US (occurrence: None)
  Receive Date: 20250916
  Receipt Date: 20250916
  Transmission Date: 20251020
  Serious: Yes (Hospitalization)
  Sender: FDA-CTU
  Company Number: None

PATIENT
  Age: 38 Year
  Sex: Male
  Weight: 93 kg

DRUGS (3)
  1. CLOZAPINE [Suspect]
     Active Substance: CLOZAPINE
     Indication: Schizoaffective disorder
     Dosage: FREQUENCY : TWICE A DAY;?
     Route: 048
     Dates: start: 20250827, end: 20250910
  2. DIVALPROEX SODIUM [Concomitant]
     Active Substance: DIVALPROEX SODIUM
     Dates: start: 20250825, end: 20250910
  3. LURASIDONE [Concomitant]
     Active Substance: LURASIDONE
     Dates: start: 20250825, end: 20250904

REACTIONS (7)
  - Malaise [None]
  - Cough [None]
  - Malaise [None]
  - Nonspecific reaction [None]
  - C-reactive protein increased [None]
  - Troponin increased [None]
  - Myocarditis [None]

NARRATIVE: CASE EVENT DATE: 20250910
